FAERS Safety Report 5084634-X (Version None)
Quarter: 2006Q3

REPORT INFORMATION
  Report Type: 
  Country: None (occurrence: None)
  Receive Date: 20060821
  Receipt Date: 20060802
  Transmission Date: 20061208
  Serious: Yes (Hospitalization)
  Sender: FDA-Public Use
  Company Number: US-ROCHE-457876

PATIENT
  Age: 53 Year
  Sex: Male
  Weight: 86.2 kg

DRUGS (8)
  1. GRANISETRON HYDROCHLORIDE [Suspect]
     Indication: PANCREATIC NEOPLASM
     Route: 042
     Dates: start: 20060424, end: 20060612
  2. AVASTIN [Suspect]
     Indication: PANCREATIC NEOPLASM
     Route: 042
     Dates: start: 20060424, end: 20060612
  3. DEXAMETHASONE [Suspect]
     Indication: PANCREATIC NEOPLASM
     Route: 042
     Dates: start: 20060424, end: 20060612
  4. OXALIPLATIN [Suspect]
     Indication: PANCREATIC NEOPLASM
     Route: 042
     Dates: start: 20060424
  5. OXALIPLATIN [Suspect]
     Dosage: REDUCED DOSE
     Route: 042
     Dates: end: 20060612
  6. LEUCOVORIN CALCIUM [Suspect]
     Indication: PANCREATIC NEOPLASM
     Route: 042
     Dates: start: 20060424, end: 20060612
  7. FLUOROURACIL [Suspect]
     Indication: PANCREATIC NEOPLASM
     Route: 065
     Dates: start: 20060424
  8. PROTONIX [Concomitant]

REACTIONS (5)
  - ABDOMINAL PAIN [None]
  - ANAEMIA [None]
  - ASTHENIA [None]
  - PLATELET COUNT DECREASED [None]
  - PYREXIA [None]
